FAERS Safety Report 22540960 (Version 1)
Quarter: 2023Q2

REPORT INFORMATION
  Report Type: Spontaneous
  Country: FR (occurrence: FR)
  Receive Date: 20230609
  Receipt Date: 20230609
  Transmission Date: 20230722
  Serious: Yes (Other)
  Sender: FDA-Public Use
  Company Number: None

PATIENT
  Age: 63 Year
  Sex: Female

DRUGS (5)
  1. CARBOPLATIN [Suspect]
     Active Substance: CARBOPLATIN
     Indication: Ovarian cancer
     Dosage: 1 DF, MONTHLY
     Route: 042
     Dates: start: 20230301
  2. PERINDOPRIL [Suspect]
     Active Substance: PERINDOPRIL
     Indication: Ischaemic stroke
     Dosage: 4 MG, 1X/DAY
     Route: 048
     Dates: start: 20230209
  3. DOXORUBICIN HYDROCHLORIDE [Suspect]
     Active Substance: DOXORUBICIN HYDROCHLORIDE
     Indication: Ovarian cancer
     Dosage: 1 DF, MONTHLY
     Route: 042
     Dates: start: 20230301
  4. ATORVASTATIN [Concomitant]
     Active Substance: ATORVASTATIN
     Indication: Ischaemic stroke
     Dosage: 10 MG, 1X/DAY
     Route: 048
     Dates: start: 20230209
  5. ASPIRIN [Concomitant]
     Active Substance: ASPIRIN
     Indication: Ischaemic stroke
     Dosage: 100 MG, 1X/DAY
     Route: 048
     Dates: start: 20230204

REACTIONS (1)
  - Cyanosis [Not Recovered/Not Resolved]

NARRATIVE: CASE EVENT DATE: 20230101
